FAERS Safety Report 5362971-9 (Version None)
Quarter: 2007Q2

REPORT INFORMATION
  Report Type: 
  Country: None (occurrence: None)
  Receive Date: 20070619
  Receipt Date: 20070606
  Transmission Date: 20071010
  Serious: Yes (Hospitalization)
  Sender: FDA-Public Use
  Company Number: DE-GENENTECH-243065

PATIENT
  Sex: Male

DRUGS (4)
  1. AVASTIN [Suspect]
     Indication: COLON CANCER METASTATIC
  2. FLUOROURACIL [Concomitant]
     Indication: COLON CANCER METASTATIC
  3. FOLINIC ACID [Concomitant]
     Indication: COLON CANCER METASTATIC
  4. IRINOTECAN HCL [Concomitant]
     Indication: COLON CANCER METASTATIC

REACTIONS (3)
  - PARALYSIS [None]
  - QUADRIPLEGIA [None]
  - RESPIRATORY PARALYSIS [None]
